FAERS Safety Report 4352783-7 (Version None)
Quarter: 2004Q2

REPORT INFORMATION
  Report Type: 
  Country: None (occurrence: None)
  Receive Date: 20040429
  Receipt Date: 20040421
  Transmission Date: 20050107
  Serious: Yes (Hospitalization)
  Sender: FDA-Public Use
  Company Number: 231887K04USA

PATIENT
  Age: 36 Year
  Sex: Female

DRUGS (1)
  1. REBIF [Suspect]
     Indication: MULTIPLE SCLEROSIS
     Dosage: SUBCUTANEOUS
     Route: 058
     Dates: start: 20031125

REACTIONS (3)
  - BLOOD CHOLESTEROL INCREASED [None]
  - CHEST DISCOMFORT [None]
  - DYSPNOEA [None]
